FAERS Safety Report 6732885-8 (Version None)
Quarter: 2010Q2

REPORT INFORMATION
  Report Type: 
  Country: None (occurrence: None)
  Receive Date: 20100519
  Receipt Date: 20100510
  Transmission Date: 20101027
  Serious: Yes (Other)
  Sender: FDA-Public Use
  Company Number: GB-WATSON-2010-06241

PATIENT

DRUGS (3)
  1. SIMVASTATIN (WATSON LABORATORIES) [Suspect]
     Indication: BLOOD CHOLESTEROL INCREASED
     Dosage: 40 MG, UNK
     Route: 048
     Dates: start: 20100329, end: 20100401
  2. LEVOTHYROXINE SODIUM [Concomitant]
     Indication: HYPOTHYROIDISM
     Dosage: 125 MCG, UNK
     Route: 048
  3. LOSARTAN POTASSIUM [Concomitant]
     Indication: HYPERTENSION
     Dosage: 100 MG, UNK
     Route: 048

REACTIONS (4)
  - DEPRESSION [None]
  - EMOTIONAL DISTRESS [None]
  - MUSCLE RIGIDITY [None]
  - MYALGIA [None]
